FAERS Safety Report 16667504 (Version 1)
Quarter: 2019Q3

REPORT INFORMATION
  Report Type: Spontaneous
  Country: CN (occurrence: CN)
  Receive Date: 20190805
  Receipt Date: 20190805
  Transmission Date: 20191004
  Serious: Yes (Hospitalization, Other)
  Sender: FDA-Public Use
  Company Number: CN-PFIZER INC-2019326711

PATIENT
  Age: 49 Year
  Sex: Male

DRUGS (1)
  1. LIPITOR [Suspect]
     Active Substance: ATORVASTATIN CALCIUM
     Indication: HYPERLIPIDAEMIA
     Dosage: 20 MG, 1X/DAY
     Route: 048
     Dates: start: 20190625, end: 20190701

REACTIONS (2)
  - Hepatic function abnormal [Recovering/Resolving]
  - Cholecystitis acute [Recovering/Resolving]

NARRATIVE: CASE EVENT DATE: 20190701
